FAERS Safety Report 7825454-X (Version None)
Quarter: 2011Q4

REPORT INFORMATION
  Report Type: 
  Country: None (occurrence: None)
  Receive Date: 20111019
  Receipt Date: 20111007
  Transmission Date: 20120403
  Serious: Yes (Disabling, Other)
  Sender: FDA-Public Use
  Company Number: JP-UCBSA-043207

PATIENT

DRUGS (1)
  1. XYZAL [Suspect]
     Route: 048

REACTIONS (2)
  - DEAFNESS [None]
  - OTITIS MEDIA [None]
